FAERS Safety Report 12352848 (Version 1)
Quarter: 2016Q2

REPORT INFORMATION
  Report Type: Spontaneous
  Country: US (occurrence: US)
  Receive Date: 20160510
  Receipt Date: 20160510
  Transmission Date: 20160815
  Serious: No
  Sender: FDA-Public Use
  Company Number: US-BAYER-2016-089597

PATIENT
  Age: 21 Year
  Sex: Female

DRUGS (1)
  1. BEYAZ [Suspect]
     Active Substance: DROSPIRENONE\ETHINYL ESTRADIOL\LEVOMEFOLATE CALCIUM
     Dosage: UNK
     Route: 048
     Dates: start: 2014

REACTIONS (8)
  - Product use issue [Not Recovered/Not Resolved]
  - Vomiting [None]
  - Nausea [None]
  - Therapeutic response unexpected [Not Recovered/Not Resolved]
  - Amenorrhoea [None]
  - Product use issue [None]
  - Unevaluable event [Not Recovered/Not Resolved]
  - Withdrawal bleed [Not Recovered/Not Resolved]
